FAERS Safety Report 12166120 (Version 1)
Quarter: 2016Q1

REPORT INFORMATION
  Report Type: Spontaneous
  Country: CA (occurrence: CA)
  Receive Date: 20160309
  Receipt Date: 20160309
  Transmission Date: 20160526
  Serious: Yes (Other)
  Sender: FDA-Public Use
  Company Number: CA-TEVA-641897ACC

PATIENT
  Age: 74 Year
  Sex: Male

DRUGS (4)
  1. RAMIPRIL/HYDROCHLOROTHIAZIDE [Concomitant]
     Active Substance: HYDROCHLOROTHIAZIDE\RAMIPRIL
  2. ALFUZOSIN [Concomitant]
     Active Substance: ALFUZOSIN
  3. ELTROXIN [Concomitant]
     Active Substance: LEVOTHYROXINE
  4. TEVA-DUTASTERIDE SOFT GELATIN CAPSULE [Suspect]
     Active Substance: DUTASTERIDE
     Indication: BENIGN PROSTATIC HYPERPLASIA
     Dosage: .5 MILLIGRAM DAILY;
     Route: 048

REACTIONS (2)
  - Scrotal pain [Unknown]
  - Scrotal swelling [Unknown]
